FAERS Safety Report 6844685-9 (Version None)
Quarter: 2010Q2

REPORT INFORMATION
  Report Type: 
  Country: None (occurrence: None)
  Receive Date: 20100629
  Receipt Date: 20100406
  Transmission Date: 20101027
  Serious: No
  Sender: FDA-Public Use
  Company Number: US-WYE-H14474310

PATIENT
  Age: 52 Year
  Sex: Female
  Weight: 78.09 kg

DRUGS (6)
  1. PRISTIQ [Suspect]
     Indication: ANXIETY DISORDER
     Dosage: TOOK 1/2 OF 50 MG TABLET DAILY; 50 MG 1X PER 1 DAY
     Dates: start: 20090401, end: 20090101
  2. PRISTIQ [Suspect]
     Indication: PANIC ATTACK
     Dosage: TOOK 1/2 OF 50 MG TABLET DAILY; 50 MG 1X PER 1 DAY
     Dates: start: 20090401, end: 20090101
  3. PRISTIQ [Suspect]
     Indication: ANXIETY DISORDER
     Dosage: TOOK 1/2 OF 50 MG TABLET DAILY; 50 MG 1X PER 1 DAY
     Dates: start: 20100301
  4. PRISTIQ [Suspect]
     Indication: PANIC ATTACK
     Dosage: TOOK 1/2 OF 50 MG TABLET DAILY; 50 MG 1X PER 1 DAY
     Dates: start: 20100301
  5. LEVOTHYROXINE SODIUM [Concomitant]
  6. CRESTOR [Concomitant]

REACTIONS (3)
  - DIZZINESS [None]
  - DYSPNOEA [None]
  - VISION BLURRED [None]
